FAERS Safety Report 5012286-3 (Version None)
Quarter: 2006Q2

REPORT INFORMATION
  Report Type: 
  Country: None (occurrence: None)
  Receive Date: 20060410
  Receipt Date: 20050311
  Transmission Date: 20061013
  Serious: Yes (Hospitalization)
  Sender: FDA-Public Use
  Company Number: 05P-163-0292908-00

PATIENT
  Age: 43 Year
  Sex: Female

DRUGS (4)
  1. DEPAKOTE [Suspect]
     Indication: BIPOLAR DISORDER
     Dosage: SEE IMAGE
     Route: 048
     Dates: start: 20020101, end: 20040801
  2. DEPAKOTE [Suspect]
     Indication: BIPOLAR DISORDER
     Dosage: SEE IMAGE
     Route: 048
     Dates: start: 20040801, end: 20040801
  3. PAROXETINE HYDROCHLORIDE [Concomitant]
  4. TRILAPTIL [Concomitant]

REACTIONS (1)
  - INTENTIONAL OVERDOSE [None]
